FAERS Safety Report 26014736 (Version 3)
Quarter: 2025Q4

REPORT INFORMATION
  Report Type: Report from Study
  Country: CN (occurrence: CN)
  Receive Date: 20251108
  Receipt Date: 20251127
  Transmission Date: 20260117
  Serious: Yes (Hospitalization, Other)
  Sender: SANOFI AVENTIS
  Company Number: CN-SA-2025SA324097

PATIENT
  Age: 68 Year
  Sex: Male
  Weight: 80 kg

DRUGS (8)
  1. DOCETAXEL [Suspect]
     Active Substance: DOCETAXEL
     Indication: Non-small cell lung cancer
     Dosage: 75 MG/M2, Q3W
     Route: 042
     Dates: start: 20250912, end: 20251010
  2. TELISOTUZUMAB VEDOTIN [Suspect]
     Active Substance: TELISOTUZUMAB VEDOTIN
     Indication: Non-small cell lung cancer
     Dosage: UNK
  3. MEGESTROL ACETATE [Concomitant]
     Active Substance: MEGESTROL ACETATE
     Indication: Decreased appetite
     Dosage: 160 MG, QD
     Dates: start: 20250917
  4. BICYCLOL [Concomitant]
     Active Substance: BICYCLOL
     Indication: Hepatic function abnormal
     Dosage: 25 MG, QD (3/DAYS)
     Route: 049
     Dates: start: 20250917
  5. Tabellae pentoxyverini et ammonii chloridi [Concomitant]
     Indication: Cough
     Dosage: 1 DF, TID
     Dates: start: 20250917
  6. Tabellae pentoxyverini et ammonii chloridi [Concomitant]
     Indication: Productive cough
  7. OXYCODONE AND ACETAMINOPHEN [Concomitant]
     Active Substance: ACETAMINOPHEN\OXYCODONE HYDROCHLORIDE
     Indication: Abdominal pain
     Dosage: 5 MG, Q8H
     Dates: start: 20250917
  8. OXYCODONE AND ACETAMINOPHEN [Concomitant]
     Active Substance: ACETAMINOPHEN\OXYCODONE HYDROCHLORIDE
     Indication: Chest pain

REACTIONS (3)
  - Myelosuppression [Not Recovered/Not Resolved]
  - Pneumonia [Not Recovered/Not Resolved]
  - Neutropenia [Not Recovered/Not Resolved]

NARRATIVE: CASE EVENT DATE: 20251015
